FAERS Safety Report 4727720-3 (Version None)
Quarter: 2005Q3

REPORT INFORMATION
  Report Type: 
  Country: None (occurrence: None)
  Receive Date: 20050725
  Receipt Date: 20050505
  Transmission Date: 20060218
  Serious: No
  Sender: FDA-Public Use
  Company Number: USA050597264

PATIENT
  Age: 53 Year
  Sex: Female
  Weight: 91 kg

DRUGS (6)
  1. STRATTERA [Suspect]
     Indication: ATTENTION DEFICIT/HYPERACTIVITY DISORDER
     Dosage: 80 MG DAY
     Dates: start: 20050401
  2. TRILEPTAL [Concomitant]
  3. SEROQUEL [Concomitant]
  4. ZELNORM [Concomitant]
  5. NEURONTIN [Concomitant]
  6. WELLBUTRIN [Concomitant]

REACTIONS (4)
  - GINGIVAL SWELLING [None]
  - HALLUCINATION [None]
  - HALLUCINATION, AUDITORY [None]
  - LIBIDO DECREASED [None]
